FAERS Safety Report 10482122 (Version 2)
Quarter: 2014Q3

REPORT INFORMATION
  Report Type: Spontaneous
  Country: JP (occurrence: JP)
  Receive Date: 20140929
  Receipt Date: 20140929
  Transmission Date: 20150326
  Serious: Yes (Other)
  Sender: FDA-Public Use
  Company Number: JP-PFIZER INC-2014194520

PATIENT
  Age: 79 Year
  Sex: Male
  Weight: 52.6 kg

DRUGS (12)
  1. LANIRAPID [Concomitant]
     Active Substance: METILDIGOXIN
  2. EXCEGRAN [Concomitant]
     Active Substance: ZONISAMIDE
     Dosage: UNK
  3. GABAPEN [Concomitant]
     Active Substance: GABAPENTIN
  4. DONEPEZIL HYDROCHLORIDE. [Concomitant]
     Active Substance: DONEPEZIL HYDROCHLORIDE
     Route: 048
  5. ZYVOX [Suspect]
     Active Substance: LINEZOLID
     Indication: SPONDYLITIS
     Dosage: 600 MG, 2X/DAY
     Route: 048
     Dates: start: 20140408, end: 20140710
  6. DIGOXIN. [Concomitant]
     Active Substance: DIGOXIN
  7. H2 BLOCKER [Concomitant]
  8. DEPAKENE [Concomitant]
     Active Substance: VALPROIC ACID
  9. FAMOTIDINE D [Concomitant]
     Active Substance: FAMOTIDINE
  10. KETAS [Concomitant]
     Active Substance: IBUDILAST
  11. VALERIN [Concomitant]
     Active Substance: VALPROATE SODIUM
  12. WARFARIN [Concomitant]
     Active Substance: WARFARIN
     Dosage: 2.25 MG, DAILY
     Route: 048
     Dates: end: 20140708

REACTIONS (1)
  - International normalised ratio increased [Recovered/Resolved]

NARRATIVE: CASE EVENT DATE: 20140708
